FAERS Safety Report 11661424 (Version 2)
Quarter: 2015Q4

REPORT INFORMATION
  Report Type: Spontaneous
  Country: US (occurrence: US)
  Receive Date: 20151026
  Receipt Date: 20151207
  Transmission Date: 20160304
  Serious: No
  Sender: FDA-Public Use
  Company Number: US-ASTRAZENECA-2015SF00599

PATIENT
  Sex: Male
  Weight: 75.8 kg

DRUGS (4)
  1. PROAIR HFA [Concomitant]
     Active Substance: ALBUTEROL SULFATE
     Indication: INHALATION THERAPY
     Dosage: AS REQUIRED
     Route: 055
  2. SYMBICORT [Suspect]
     Active Substance: BUDESONIDE\FORMOTEROL FUMARATE DIHYDRATE
     Indication: CHRONIC OBSTRUCTIVE PULMONARY DISEASE
     Dosage: 160/4.5 MCG 120, TWO PUFFS TWO TIMES A DAY
     Route: 055
     Dates: start: 2014
  3. SPIRIVA [Concomitant]
     Active Substance: TIOTROPIUM BROMIDE MONOHYDRATE
     Indication: CHRONIC OBSTRUCTIVE PULMONARY DISEASE
     Dosage: TWO TIMES A DAY
     Route: 055
  4. BROMIDE [Concomitant]
     Indication: INHALATION THERAPY
     Dosage: AS REQUIRED
     Route: 055

REACTIONS (3)
  - Dyspnoea [Unknown]
  - Product quality issue [Unknown]
  - Drug dose omission [Unknown]
